FAERS Safety Report 9634059 (Version 1)
Quarter: 2013Q4

REPORT INFORMATION
  Report Type: Spontaneous
  Country: US (occurrence: US)
  Receive Date: 20131021
  Receipt Date: 20131021
  Transmission Date: 20140711
  Serious: No
  Sender: FDA-Public Use
  Company Number: US-009507513-1310USA008033

PATIENT
  Age: 77 Year
  Sex: Male

DRUGS (2)
  1. REMERON [Suspect]
     Dosage: 30 MG, QPM
     Route: 048
     Dates: start: 201304
  2. SEROQUEL [Concomitant]
     Dosage: UNK

REACTIONS (2)
  - Nausea [Not Recovered/Not Resolved]
  - Malaise [Not Recovered/Not Resolved]
